FAERS Safety Report 17301496 (Version 1)
Quarter: 2020Q1

REPORT INFORMATION
  Report Type: Spontaneous
  Country: GB (occurrence: GB)
  Receive Date: 20200122
  Receipt Date: 20200122
  Transmission Date: 20200409
  Serious: Yes (Other)
  Sender: FDA-Public Use
  Company Number: GB-GILEAD-2020-0445424

PATIENT
  Age: 74 Year
  Sex: Male

DRUGS (18)
  1. CINNARIZINE [Concomitant]
     Active Substance: CINNARIZINE
  2. ATORVASTATIN [Concomitant]
     Active Substance: ATORVASTATIN
  3. RAMIPRIL. [Concomitant]
     Active Substance: RAMIPRIL
  4. TICAGRELOR. [Concomitant]
     Active Substance: TICAGRELOR
  5. FINASTERIDE. [Concomitant]
     Active Substance: FINASTERIDE
  6. BRILIQUE [Concomitant]
     Active Substance: TICAGRELOR
  7. METFORMIN [Concomitant]
     Active Substance: METFORMIN HYDROCHLORIDE
  8. MAGNESIUM [Concomitant]
     Active Substance: MAGNESIUM
  9. MONTELUKAST [Concomitant]
     Active Substance: MONTELUKAST SODIUM
  10. RANEXA [Suspect]
     Active Substance: RANOLAZINE
     Indication: ANGINA PECTORIS
     Dosage: 375 MG, BID
     Route: 065
     Dates: start: 20191210, end: 20200102
  11. FAMOTIDINE. [Concomitant]
     Active Substance: FAMOTIDINE
  12. RANITIDINE. [Concomitant]
     Active Substance: RANITIDINE
  13. TAMULOSIN [Concomitant]
     Active Substance: TAMSULOSIN
  14. ACEBUTOLOL [Concomitant]
     Active Substance: ACEBUTOLOL
  15. TRAMADOL. [Concomitant]
     Active Substance: TRAMADOL
  16. ACETYLSALICYLIC ACID, ASCORBIC ACID [Concomitant]
  17. ADCAL D3 [Concomitant]
     Active Substance: CALCIUM CARBONATE\CHOLECALCIFEROL
  18. FRUMIL [Concomitant]
     Active Substance: AMILORIDE HYDROCHLORIDE\FUROSEMIDE

REACTIONS (8)
  - Abdominal pain upper [Unknown]
  - Constipation [Unknown]
  - Vomiting [Unknown]
  - Fatigue [Unknown]
  - Nausea [Unknown]
  - Vertigo [Unknown]
  - Decreased appetite [Recovered/Resolved]
  - Weight decreased [Unknown]

NARRATIVE: CASE EVENT DATE: 20191210
